FAERS Safety Report 6599966-3 (Version None)
Quarter: 2010Q1

REPORT INFORMATION
  Report Type: 
  Country: None (occurrence: None)
  Receive Date: 20100224
  Receipt Date: 20100208
  Transmission Date: 20100710
  Serious: Yes (Other)
  Sender: FDA-Public Use
  Company Number: BR-SANOFI-AVENTIS-2010SA007855

PATIENT
  Sex: Male
  Weight: 89 kg

DRUGS (8)
  1. LANTUS [Suspect]
     Route: 058
     Dates: start: 20050101
  2. OPTIPEN [Suspect]
     Dates: start: 20050101, end: 20090101
  3. ATORVASTATIN CALCIUM [Concomitant]
     Route: 048
  4. VASOPRIL /BRA/ [Concomitant]
     Route: 048
  5. EPOETIN NOS [Concomitant]
     Indication: RENAL DISORDER
  6. FOLIC ACID/IRON [Concomitant]
     Dosage: 1 TABLET
     Route: 048
  7. MICARDIS [Concomitant]
     Route: 048
  8. CALCITRIOL [Concomitant]
     Route: 048

REACTIONS (1)
  - RENAL FAILURE CHRONIC [None]
